FAERS Safety Report 14672378 (Version 1)
Quarter: 2018Q1

REPORT INFORMATION
  Report Type: Spontaneous
  Country: FR (occurrence: FR)
  Receive Date: 20180323
  Receipt Date: 20180323
  Transmission Date: 20180509
  Serious: Yes (Other)
  Sender: FDA-Public Use
  Company Number: FR-MERCK KGAA-2044382

PATIENT
  Age: 52 Year
  Sex: Female

DRUGS (1)
  1. NOVOTHYROX [Suspect]
     Active Substance: LEVOTHYROXINE SODIUM
     Indication: PRODUCT USED FOR UNKNOWN INDICATION

REACTIONS (26)
  - Gastrointestinal pain [None]
  - Tension [None]
  - Myalgia [None]
  - Areflexia [None]
  - Affective disorder [Recovered/Resolved]
  - Sleep disorder [Recovered/Resolved]
  - Gastrointestinal disorder [Recovered/Resolved]
  - Headache [Recovered/Resolved]
  - Personal relationship issue [None]
  - Impaired driving ability [None]
  - Palpitations [None]
  - Gait inability [None]
  - Abdominal pain [None]
  - Blood thyroid stimulating hormone decreased [None]
  - Asthenia [Recovered/Resolved]
  - Depression [None]
  - Suicide attempt [None]
  - Insomnia [None]
  - Diarrhoea [None]
  - Anger [None]
  - Aggression [None]
  - Loss of personal independence in daily activities [None]
  - Gamma-glutamyltransferase increased [None]
  - Skin disorder [None]
  - Antisocial behaviour [None]
  - Blood chloride increased [None]

NARRATIVE: CASE EVENT DATE: 201704
